FAERS Safety Report 10442093 (Version 2)
Quarter: 2014Q3

REPORT INFORMATION
  Report Type: Spontaneous
  Country: TR (occurrence: TR)
  Receive Date: 20140909
  Receipt Date: 20140917
  Transmission Date: 20150326
  Serious: Yes (Other)
  Sender: FDA-Public Use
  Company Number: TR-PFIZER INC-2014247451

PATIENT
  Age: 5 Year
  Sex: Female

DRUGS (1)
  1. CLEOCIN [Suspect]
     Active Substance: CLINDAMYCIN PHOSPHATE
     Indication: NASOPHARYNGITIS
     Dosage: 600 MG/ 4 ML INJECTION
     Dates: start: 2010

REACTIONS (1)
  - Paralysis [Not Recovered/Not Resolved]
